FAERS Safety Report 9926768 (Version 1)
Quarter: 2014Q1

REPORT INFORMATION
  Report Type: Spontaneous
  Country: US (occurrence: US)
  Receive Date: 20140226
  Receipt Date: 20140226
  Transmission Date: 20141002
  Serious: No
  Sender: FDA-Public Use
  Company Number: US-AMGEN-USASP2013078779

PATIENT
  Age: 71 Year
  Sex: Female
  Weight: 69.39 kg

DRUGS (7)
  1. ENBREL [Suspect]
     Indication: PRODUCT USED FOR UNKNOWN INDICATION
     Dosage: 50 MG, QWK
     Route: 058
     Dates: start: 20131010
  2. LASIX                              /00032601/ [Concomitant]
     Dosage: 20 MG, UNK
  3. SYNTHROID [Concomitant]
     Dosage: 25 MUG, UNK
  4. CITRACAL + D                       /01438101/ [Concomitant]
     Dosage: UNK
  5. FOSAMAX [Concomitant]
     Dosage: 5 MG, UNK
  6. SENOKOT-S [Concomitant]
     Dosage: 8.6-50 MG
  7. IMURAN                             /00001501/ [Concomitant]
     Dosage: 50 MG, UNK

REACTIONS (1)
  - Injection site erythema [Unknown]
